FAERS Safety Report 24952565 (Version 1)
Quarter: 2025Q1

REPORT INFORMATION
  Report Type: Report from Study
  Country: US (occurrence: US)
  Receive Date: 20250210
  Receipt Date: 20250210
  Transmission Date: 20250409
  Serious: Yes (Hospitalization, Other)
  Sender: ABBVIE
  Company Number: US-ABBVIE-6102489

PATIENT
  Age: 67 Year
  Sex: Female
  Weight: 68.038 kg

DRUGS (2)
  1. VENCLEXTA [Suspect]
     Active Substance: VENETOCLAX
     Indication: Myelodysplastic syndrome
     Dosage: FORM STRENGTH:50 MILLIGRAM
     Route: 048
     Dates: start: 20250127
  2. VENCLEXTA [Suspect]
     Active Substance: VENETOCLAX
     Indication: Myelodysplastic syndrome
     Dosage: FORM STRENGTH:50 MILLIGRAM
     Route: 048
     Dates: start: 202408

REACTIONS (2)
  - Myelodysplastic syndrome transformation [Not Recovered/Not Resolved]
  - Transformation to acute myeloid leukaemia [Not Recovered/Not Resolved]

NARRATIVE: CASE EVENT DATE: 20240101
